FAERS Safety Report 25159005 (Version 1)
Quarter: 2025Q2

REPORT INFORMATION
  Report Type: Report from Study
  Country: US (occurrence: US)
  Receive Date: 20250404
  Receipt Date: 20250404
  Transmission Date: 20250716
  Serious: Yes (Hospitalization, Other)
  Sender: TAKEDA
  Company Number: US-TAKEDA-2025TUS022061

PATIENT
  Sex: Female
  Weight: 72.109 kg

DRUGS (1)
  1. FRUQUINTINIB [Suspect]
     Active Substance: FRUQUINTINIB
     Indication: Colon cancer
     Dosage: 5 MILLIGRAM, QD
     Dates: start: 20250131

REACTIONS (11)
  - Sepsis [Unknown]
  - Neuropathy peripheral [Unknown]
  - Erythema [Unknown]
  - Oral discomfort [Unknown]
  - Sciatica [Unknown]
  - Contusion [Unknown]
  - Oral herpes [Unknown]
  - Blood pressure abnormal [Unknown]
  - Vomiting [Unknown]
  - Pain in extremity [Unknown]
  - Fatigue [Unknown]
